FAERS Safety Report 10070269 (Version 3)
Quarter: 2014Q2

REPORT INFORMATION
  Report Type: Spontaneous
  Country: US (occurrence: US)
  Receive Date: 20140410
  Receipt Date: 20140609
  Transmission Date: 20141212
  Serious: Yes (Hospitalization, Other)
  Sender: FDA-Public Use
  Company Number: US-ACORDA-ACO_26979_2011

PATIENT
  Age: 69 Year
  Sex: Female
  Weight: 64.4 kg

DRUGS (12)
  1. AMPYRA [Suspect]
     Indication: GAIT DISTURBANCE
     Dosage: 10 MG, BID
     Route: 048
     Dates: start: 201105, end: 2012
  2. AMPYRA [Suspect]
     Dosage: 10 MG, QD
     Route: 048
     Dates: start: 201105
  3. SPIRIVA [Suspect]
     Indication: PRODUCT USED FOR UNKNOWN INDICATION
     Dosage: UNK,UNK
     Route: 065
  4. ALLERGY PILL [Suspect]
     Indication: HYPERSENSITIVITY
     Dosage: UNK, PRN
     Route: 065
     Dates: start: 201312
  5. COPAXONE [Concomitant]
     Indication: PRODUCT USED FOR UNKNOWN INDICATION
     Dosage: UNK
     Route: 065
  6. CALCIUM [Concomitant]
     Indication: PRODUCT USED FOR UNKNOWN INDICATION
     Dosage: UNK
     Route: 065
  7. MAGNESIUM [Concomitant]
     Indication: PRODUCT USED FOR UNKNOWN INDICATION
     Dosage: UNK,UNK
     Route: 065
     Dates: end: 201402
  8. VITAMIN PILLS [Concomitant]
     Indication: PRODUCT USED FOR UNKNOWN INDICATION
     Dosage: UNK,UNK
     Route: 065
     Dates: end: 201402
  9. ALBUTEROL HFA [Concomitant]
     Indication: DYSPNOEA
     Dosage: UNK, PRN
     Route: 065
  10. ADVIL [Concomitant]
     Indication: BACK PAIN
     Dosage: UNK,UNK
     Route: 065
  11. IBUPROFEN [Concomitant]
     Indication: BACK PAIN
     Dosage: UNK,UNK
     Route: 065
  12. ALEVE [Concomitant]
     Indication: BACK PAIN
     Dosage: UNK,UNK
     Route: 065

REACTIONS (14)
  - Bronchitis [Recovered/Resolved]
  - Sinusitis [Not Recovered/Not Resolved]
  - Allergy to animal [Recovered/Resolved]
  - Hypomagnesaemia [Unknown]
  - Respiratory failure [Not Recovered/Not Resolved]
  - Cholelithiasis [Unknown]
  - Hepatic enzyme increased [Unknown]
  - Alopecia [Recovered/Resolved]
  - Nail ridging [Not Recovered/Not Resolved]
  - Epistaxis [Not Recovered/Not Resolved]
  - Weight increased [Not Recovered/Not Resolved]
  - Hypotension [Unknown]
  - Gait disturbance [Not Recovered/Not Resolved]
  - Inappropriate schedule of drug administration [Unknown]
